FAERS Safety Report 6797668-1 (Version None)
Quarter: 2010Q2

REPORT INFORMATION
  Report Type: 
  Country: None (occurrence: None)
  Receive Date: 20100623
  Receipt Date: 20100601
  Transmission Date: 20101027
  Serious: Yes (Hospitalization)
  Sender: FDA-Public Use
  Company Number: JP-SOLVAY-00310003555

PATIENT
  Age: 71 Year
  Sex: Male

DRUGS (9)
  1. LUVOX [Suspect]
     Indication: DRUG USE FOR UNKNOWN INDICATION
     Dosage: 75 MILLIGRAM(S) ORAL
     Route: 048
     Dates: start: 20091211, end: 20100531
  2. LIPITOR [Concomitant]
  3. PLAVIX [Concomitant]
  4. ARICEPT [Concomitant]
  5. MAGNESIUM OXIDE (MAGNESIUM OXIDE) [Concomitant]
  6. PAROTIN (SALIVARY GLAND HORMONE) [Concomitant]
  7. HALCION [Concomitant]
  8. CAPTOPRIL [Concomitant]
  9. MUCODYNE (CARBOCISTEINE) [Concomitant]

REACTIONS (2)
  - CONVULSION [None]
  - DEPRESSED LEVEL OF CONSCIOUSNESS [None]
